FAERS Safety Report 4826009-1 (Version None)
Quarter: 2005Q4

REPORT INFORMATION
  Report Type: 
  Country: None (occurrence: None)
  Receive Date: 20051111
  Receipt Date: 20050802
  Transmission Date: 20060501
  Serious: Yes (Hospitalization)
  Sender: FDA-Public Use
  Company Number: US-MERCK-0508USA00948

PATIENT
  Age: 69 Year
  Sex: Female
  Weight: 88 kg

DRUGS (12)
  1. VIOXX [Suspect]
     Indication: OSTEOARTHRITIS
     Route: 048
     Dates: start: 20010418, end: 20050204
  2. HYDROCHLOROTHIAZIDE AND TRIAMTERENE [Concomitant]
     Route: 048
  3. PREVACID [Concomitant]
     Route: 048
  4. ACETAMINOPHEN AND CODEINE [Concomitant]
     Route: 048
  5. ZOCOR [Concomitant]
     Route: 048
  6. METHOCARBAMOL [Concomitant]
     Route: 048
  7. LIPITOR [Concomitant]
     Indication: BLOOD CHOLESTEROL INCREASED
     Route: 048
     Dates: start: 20000101, end: 20030301
  8. LIPITOR [Concomitant]
     Route: 048
     Dates: start: 20041220
  9. TRIAMTERENE [Concomitant]
     Route: 048
  10. ADVAIR DISKUS 100/50 [Concomitant]
     Route: 055
  11. ARIMIDEX [Concomitant]
     Route: 048
  12. FOSAMAX [Concomitant]
     Route: 065

REACTIONS (6)
  - ANXIETY [None]
  - ATROPHIC VULVOVAGINITIS [None]
  - BREAST CANCER [None]
  - DEPRESSION [None]
  - MYOCARDIAL INFARCTION [None]
  - PULMONARY EMBOLISM [None]
